FAERS Safety Report 9296862 (Version 2)
Quarter: 2013Q2

REPORT INFORMATION
  Report Type: Spontaneous
  Country: US (occurrence: US)
  Receive Date: 20130517
  Receipt Date: 20130610
  Transmission Date: 20140414
  Serious: No
  Sender: FDA-Public Use
  Company Number: US-PFIZER INC-2013148377

PATIENT
  Age: 4 Year
  Sex: Female
  Weight: 16.6 kg

DRUGS (1)
  1. SULFASALAZINE [Suspect]
     Indication: JUVENILE IDIOPATHIC ARTHRITIS
     Dosage: 3 ML, 2X/DAY
     Route: 048
     Dates: start: 20121016, end: 20130406

REACTIONS (2)
  - Skin discolouration [Recovering/Resolving]
  - Dry skin [Recovering/Resolving]
